FAERS Safety Report 4761143-6 (Version None)
Quarter: 2005Q3

REPORT INFORMATION
  Report Type: 
  Country: None (occurrence: None)
  Receive Date: 20050901
  Receipt Date: 20050701
  Transmission Date: 20060218
  Serious: Yes (Other)
  Sender: FDA-Public Use
  Company Number: 006#1#2005-00025

PATIENT
  Age: 55 Year
  Sex: Male

DRUGS (1)
  1. EDEX [Suspect]
     Indication: ERECTILE DYSFUNCTION
     Dosage: 20 MCG (20 MCG 2 IN 1 WEEK(S)), INTRACAVERNOUS
     Route: 017
     Dates: start: 20050601

REACTIONS (3)
  - DISORIENTATION [None]
  - MEMORY IMPAIRMENT [None]
  - SPEECH DISORDER [None]
